FAERS Safety Report 14620137 (Version 2)
Quarter: 2018Q3

REPORT INFORMATION
  Report Type: Report from Study
  Country: US (occurrence: US)
  Receive Date: 20180309
  Receipt Date: 20180823
  Transmission Date: 20181010
  Serious: Yes (Other)
  Sender: FDA-Public Use
  Company Number: US-EMD SERONO-9011240

PATIENT
  Sex: Female

DRUGS (2)
  1. REBIF [Suspect]
     Active Substance: INTERFERON BETA-1A
     Route: 058
     Dates: start: 20170810
  2. REBIF [Suspect]
     Active Substance: INTERFERON BETA-1A
     Indication: MULTIPLE SCLEROSIS
     Route: 058
     Dates: start: 20141212, end: 20160102

REACTIONS (11)
  - Communication disorder [Recovered/Resolved]
  - Feeling abnormal [Recovered/Resolved]
  - Seizure [Recovered/Resolved]
  - Maternal exposure timing unspecified [Unknown]
  - Vision blurred [Recovered/Resolved]
  - Photopsia [Unknown]
  - Fatigue [Recovered/Resolved]
  - Emotional disorder [Recovered/Resolved]
  - Aphasia [Unknown]
  - Hypoaesthesia [Unknown]
  - Muscular weakness [Recovered/Resolved]
